FAERS Safety Report 9826026 (Version 1)
Quarter: 2013Q4

REPORT INFORMATION
  Report Type: Spontaneous
  Country: US (occurrence: None)
  Receive Date: 20131028
  Receipt Date: 20131028
  Transmission Date: 20140711
  Serious: Yes (Hospitalization)
  Sender: FDA-Public Use
  Company Number: 2013US002210

PATIENT
  Age: 61 Year
  Sex: Male
  Weight: 84.01 kg

DRUGS (3)
  1. ICLUSIG [Suspect]
     Indication: CHROMOSOME ANALYSIS ABNORMAL
     Route: 048
     Dates: start: 20130719, end: 20130725
  2. ICLUSIG [Suspect]
     Indication: ACUTE LYMPHOCYTIC LEUKAEMIA
     Route: 048
     Dates: start: 20130719, end: 20130725
  3. ICLUSIG [Suspect]
     Indication: B-CELL TYPE ACUTE LEUKAEMIA
     Route: 048
     Dates: start: 20130719, end: 20130725

REACTIONS (1)
  - Abdominal pain [None]
